FAERS Safety Report 5880137-0 (Version None)
Quarter: 2008Q3

REPORT INFORMATION
  Report Type: 
  Country: None (occurrence: None)
  Receive Date: 20080912
  Receipt Date: 20080902
  Transmission Date: 20090109
  Serious: Yes (Other)
  Sender: FDA-Public Use
  Company Number: US-PFIZER INC-2008073749

PATIENT
  Sex: Male
  Weight: 70.454 kg

DRUGS (3)
  1. LIPITOR [Suspect]
     Indication: BLOOD CHOLESTEROL INCREASED
     Dates: start: 20080507
  2. AVODART [Concomitant]
     Indication: PROSTATIC DISORDER
  3. TAMSULOSIN HCL [Concomitant]
     Indication: PROSTATIC DISORDER

REACTIONS (7)
  - DYSURIA [None]
  - GAIT DISTURBANCE [None]
  - MUSCLE STRAIN [None]
  - MYALGIA [None]
  - PAIN [None]
  - POLLAKIURIA [None]
  - PROSTATITIS [None]
